FAERS Safety Report 11069708 (Version 1)
Quarter: 2015Q2

REPORT INFORMATION
  Report Type: Spontaneous
  Country: JP (occurrence: JP)
  Receive Date: 20150427
  Receipt Date: 20150427
  Transmission Date: 20150821
  Serious: Yes (Other)
  Sender: FDA-Public Use
  Company Number: JP-MYLANLABS-2015M1013892

PATIENT

DRUGS (3)
  1. CYCLOPHOSPHAMIDE. [Suspect]
     Active Substance: CYCLOPHOSPHAMIDE
     Indication: LYMPHOMA
     Dosage: TWO COURSES WITH PREDNISOLONE; FOUR COURSES WITH PREDNISOLONE AND RITUXIMAB
     Route: 065
  2. PREDNISOLONE. [Suspect]
     Active Substance: PREDNISOLONE
     Indication: LYMPHOMA
     Dosage: TWO COURSES WITH CYCLOPHOSPHAMIDE; FOUR COURSES WITH CYCLOPHOSPHAMIDE AND RITUXIMAB
     Route: 065
  3. RITUXIMAB [Suspect]
     Active Substance: RITUXIMAB
     Indication: LYMPHOMA
     Dosage: FOUR COURSES
     Route: 065

REACTIONS (1)
  - Leukopenia [Unknown]
